APPROVED DRUG PRODUCT: INVEGA
Active Ingredient: PALIPERIDONE
Strength: 6MG
Dosage Form/Route: TABLET, EXTENDED RELEASE;ORAL
Application: N021999 | Product #002 | TE Code: AB
Applicant: JANSSEN PHARMACEUTICALS INC
Approved: Dec 19, 2006 | RLD: Yes | RS: Yes | Type: RX